FAERS Safety Report 16036596 (Version 1)
Quarter: 2019Q1

REPORT INFORMATION
  Report Type: Spontaneous
  Country: RS (occurrence: RS)
  Receive Date: 20190305
  Receipt Date: 20190305
  Transmission Date: 20190418
  Serious: Yes (Other)
  Sender: FDA-Public Use
  Company Number: RS-JNJFOC-20190232837

PATIENT
  Age: 61 Year
  Sex: Male

DRUGS (6)
  1. PROPOLIS [Suspect]
     Active Substance: PROPOLIS WAX
     Indication: IMMUNE ENHANCEMENT THERAPY
     Route: 065
  2. PREDNISONE. [Concomitant]
     Active Substance: PREDNISONE
     Route: 065
  3. HONEY [Suspect]
     Active Substance: HONEY
     Indication: IMMUNE ENHANCEMENT THERAPY
     Route: 065
  4. ZYTIGA [Suspect]
     Active Substance: ABIRATERONE ACETATE
     Indication: PRODUCT USED FOR UNKNOWN INDICATION
     Route: 048
  5. ZYTIGA [Suspect]
     Active Substance: ABIRATERONE ACETATE
     Indication: PRODUCT USED FOR UNKNOWN INDICATION
     Route: 048
  6. RANITIDINE. [Concomitant]
     Active Substance: RANITIDINE
     Route: 065

REACTIONS (5)
  - Aspartate aminotransferase increased [Unknown]
  - Choking [Unknown]
  - Blood pressure increased [Unknown]
  - Swollen tongue [Recovering/Resolving]
  - Blood alkaline phosphatase increased [Recovering/Resolving]
